FAERS Safety Report 4524689-1 (Version None)
Quarter: 2004Q4

REPORT INFORMATION
  Report Type: 
  Country: None (occurrence: None)
  Receive Date: 20041211
  Receipt Date: 20041029
  Transmission Date: 20050328
  Serious: Yes (Hospitalization, Other)
  Sender: FDA-Public Use
  Company Number: US-MERCK-0411USA00049

PATIENT
  Age: 64 Year
  Sex: Female

DRUGS (9)
  1. VIOXX [Suspect]
     Indication: OSTEOARTHRITIS
     Route: 048
     Dates: start: 20000211
  2. VIOXX [Suspect]
     Route: 048
     Dates: start: 20030101, end: 20041001
  3. LIPITOR [Concomitant]
     Route: 065
  4. PLAVIX [Concomitant]
     Route: 065
  5. DETROL LA [Concomitant]
     Route: 065
  6. VAGIFEM [Concomitant]
     Route: 065
  7. LIBRIUM [Concomitant]
     Route: 065
  8. ELAVIL [Concomitant]
     Route: 048
  9. GLUCOSAMINE [Concomitant]
     Route: 065

REACTIONS (12)
  - AMNESIA [None]
  - ANXIETY [None]
  - CEREBROVASCULAR ACCIDENT [None]
  - CEREBROVASCULAR DISORDER [None]
  - CONFUSIONAL STATE [None]
  - FALL [None]
  - GAIT DISTURBANCE [None]
  - HEADACHE [None]
  - PAIN [None]
  - RETINAL ARTERY OCCLUSION [None]
  - TRANSIENT ISCHAEMIC ATTACK [None]
  - VERTIGO [None]
